FAERS Safety Report 20336100 (Version 1)
Quarter: 2022Q1

REPORT INFORMATION
  Report Type: Spontaneous
  Country: US (occurrence: None)
  Receive Date: 20220114
  Receipt Date: 20220114
  Transmission Date: 20220423
  Serious: No
  Sender: FDA-Public Use
  Company Number: None

PATIENT
  Age: 68 Year
  Sex: Female
  Weight: 59.87 kg

DRUGS (1)
  1. CYCLOBENZAPRINE [Suspect]
     Active Substance: CYCLOBENZAPRINE
     Indication: Intervertebral disc degeneration
     Dosage: FREQUENCY : 3 TIMES A DAY;?
     Route: 048
     Dates: start: 20200911, end: 20201005

REACTIONS (9)
  - Product administered to patient of inappropriate age [None]
  - Drug ineffective [None]
  - Delusion [None]
  - Hallucination, visual [None]
  - Tremor [None]
  - Amnesia [None]
  - Hallucination, auditory [None]
  - Psychiatric symptom [None]
  - Loss of personal independence in daily activities [None]

NARRATIVE: CASE EVENT DATE: 20201005
